FAERS Safety Report 5529077-7 (Version None)
Quarter: 2007Q4

REPORT INFORMATION
  Report Type: 
  Country: None (occurrence: None)
  Receive Date: 20071129
  Receipt Date: 20061108
  Transmission Date: 20080405
  Serious: No
  Sender: FDA-Public Use
  Company Number: A0626743A

PATIENT
  Sex: Male

DRUGS (8)
  1. BUPROPION HYDROCHLORIDE [Suspect]
     Indication: DEPRESSION
     Dosage: 100MG TWICE PER DAY
     Route: 048
  2. PAXIL [Suspect]
     Indication: DEPRESSION
     Dosage: 10MG PER DAY
     Route: 048
  3. CLONAZEPAM [Suspect]
     Dosage: .5MG TWICE PER DAY
     Dates: start: 20060101
  4. DIAZEPAM [Suspect]
     Indication: ANXIETY
     Dosage: 10MG PER DAY
     Dates: start: 20061108
  5. REMERON [Concomitant]
  6. PLENDIL [Concomitant]
  7. HYDROCHLOROTHIAZIDE [Concomitant]
  8. XANAX [Concomitant]

REACTIONS (6)
  - ABDOMINAL DISTENSION [None]
  - ANOREXIA [None]
  - DRUG INEFFECTIVE [None]
  - SOMNOLENCE [None]
  - STOMACH DISCOMFORT [None]
  - WRONG TECHNIQUE IN DRUG USAGE PROCESS [None]
